FAERS Safety Report 8450025-4 (Version None)
Quarter: 2012Q2

REPORT INFORMATION
  Report Type: 
  Country: None (occurrence: None)
  Receive Date: 20120613
  Receipt Date: 20120529
  Transmission Date: 20120825
  Serious: Yes (Hospitalization)
  Sender: FDA-Public Use
  Company Number: BB12-068-AE

PATIENT
  Age: 73 Year
  Sex: Male

DRUGS (1)
  1. FLUOCINOLONE ACETONIDE [Suspect]
     Indication: PRODUCT USED FOR UNKNOWN INDICATION
     Dosage: TOPICAL
     Route: 061

REACTIONS (11)
  - ECZEMA [None]
  - INFLAMMATION [None]
  - DERMATITIS CONTACT [None]
  - DRUG INEFFECTIVE [None]
  - DERMATITIS ATOPIC [None]
  - URTICARIA [None]
  - APPLICATION SITE PAIN [None]
  - TOXICITY TO VARIOUS AGENTS [None]
  - RASH [None]
  - SKIN BURNING SENSATION [None]
  - DERMATITIS EXFOLIATIVE [None]
